FAERS Safety Report 19817230 (Version 1)
Quarter: 2021Q3

REPORT INFORMATION
  Report Type: Report from Study
  Country: FR (occurrence: FR)
  Receive Date: 20210910
  Receipt Date: 20210910
  Transmission Date: 20211014
  Serious: Yes (Hospitalization)
  Sender: FDA-Public Use
  Company Number: FR-EISAI MEDICAL RESEARCH-EC-2021-097868

PATIENT
  Age: 55 Year
  Sex: Female

DRUGS (1)
  1. LENVATINIB [Suspect]
     Active Substance: LENVATINIB
     Indication: SQUAMOUS CELL CARCINOMA OF HEAD AND NECK
     Route: 048
     Dates: start: 20210809, end: 20210815

REACTIONS (2)
  - Chest pain [Recovered/Resolved]
  - Post procedural haemorrhage [Recovered/Resolved]

NARRATIVE: CASE EVENT DATE: 20210809
